FAERS Safety Report 22232090 (Version 1)
Quarter: 2023Q2

REPORT INFORMATION
  Report Type: Report from Study
  Country: US (occurrence: US)
  Receive Date: 20230420
  Receipt Date: 20230420
  Transmission Date: 20230722
  Serious: Yes (Other)
  Sender: FDA-Public Use
  Company Number: US-PTx-2022000095

PATIENT
  Age: 31 Year
  Sex: Male
  Weight: 69.399 kg

DRUGS (2)
  1. SARGRAMOSTIM [Suspect]
     Active Substance: SARGRAMOSTIM
     Indication: Neutropenia
     Dosage: 250 MCG/M2, SC
     Route: 058
     Dates: start: 20200707, end: 20200707
  2. CEFEPIME [Concomitant]
     Active Substance: CEFEPIME HYDROCHLORIDE
     Indication: Product used for unknown indication
     Dosage: 2 G IV
     Route: 042
     Dates: start: 20200707, end: 20200715

REACTIONS (1)
  - Febrile neutropenia [Recovered/Resolved]

NARRATIVE: CASE EVENT DATE: 20200707
